FAERS Safety Report 6864162-9 (Version None)
Quarter: 2010Q3

REPORT INFORMATION
  Report Type: 
  Country: None (occurrence: None)
  Receive Date: 20100721
  Receipt Date: 20080315
  Transmission Date: 20110219
  Serious: No
  Sender: FDA-Public Use
  Company Number: US-PFIZER INC-2008025655

PATIENT
  Sex: Female

DRUGS (5)
  1. CHANTIX [Suspect]
     Indication: SMOKING CESSATION THERAPY
     Route: 048
     Dates: start: 20080303
  2. OXYCONTIN [Concomitant]
  3. ROXICET [Concomitant]
  4. ALPRAZOLAM [Concomitant]
  5. ANTIBIOTICS [Concomitant]

REACTIONS (3)
  - DRUG DOSE OMISSION [None]
  - INCORRECT DOSE ADMINISTERED [None]
  - NAUSEA [None]
